FAERS Safety Report 7618511-4 (Version None)
Quarter: 2011Q3

REPORT INFORMATION
  Report Type: 
  Country: None (occurrence: None)
  Receive Date: 20110718
  Receipt Date: 20110128
  Transmission Date: 20111222
  Serious: Yes (Death, Other)
  Sender: FDA-Public Use
  Company Number: US-BAYER-200940415NA

PATIENT
  Age: 54 Year
  Sex: Female
  Weight: 55 kg

DRUGS (26)
  1. SIMVASTATIN [Concomitant]
     Dosage: 80 MG, QD
     Route: 048
  2. ISOSORBIDE MONONITRATE [Concomitant]
     Dosage: 30 MG, QD
     Route: 048
  3. PANTOPRAZOLE SODIUM [Concomitant]
     Dosage: 40 MG, QD
     Route: 048
  4. FERROUS SULFATE TAB [Concomitant]
     Dosage: 324 MG, QD
     Route: 048
  5. DOPAMINE HCL [Concomitant]
  6. VERSED [Concomitant]
     Dosage: 5
     Route: 042
     Dates: start: 20050316, end: 20050316
  7. TRASYLOL [Suspect]
     Dosage: 40 CC/HOUR
     Route: 042
     Dates: start: 20050316, end: 20050316
  8. CARVEDILOL [Concomitant]
     Dosage: 12.5 MG, QD
     Route: 048
  9. CLOPIDOGREL BISULFATE [Concomitant]
     Dosage: 75 MG, QD
     Route: 048
  10. FUROSEMIDE [Concomitant]
     Dosage: 40 MG, QD
     Route: 048
  11. FENTANYL-100 [Concomitant]
     Dosage: 20
     Route: 042
     Dates: start: 20050316, end: 20050316
  12. TRASYLOL [Suspect]
     Indication: CORONARY ARTERY BYPASS
     Dosage: 2 CC TEST DOSE
     Route: 042
     Dates: start: 20050316, end: 20050316
  13. LISINOPRIL [Concomitant]
     Dosage: 20 MG, QD
     Route: 048
  14. GLUCOTROL XL [Concomitant]
     Dosage: 10 MG, QD
     Route: 048
  15. MILRINONE [Concomitant]
  16. PROTONIX [Concomitant]
     Dosage: 40 MG, QD
     Route: 048
  17. ALTACE [Concomitant]
     Dosage: 2.5 MG, BID
     Route: 048
     Dates: start: 20040705
  18. DOBUTAMINE HCL [Concomitant]
  19. NORCURON [Concomitant]
     Dosage: 16
     Route: 042
     Dates: start: 20050316, end: 20050316
  20. ANCEF [Concomitant]
     Dosage: 2 G, UNK
     Route: 042
     Dates: start: 20050316, end: 20050316
  21. BENADRYL [Concomitant]
     Dosage: 50 MG, PUMP PRIME
     Dates: start: 20050316, end: 20050316
  22. LASIX [Concomitant]
     Dosage: 40 MG, QD
     Route: 048
     Dates: start: 20040705
  23. HEPARIN [Concomitant]
     Dosage: 10 CC PUMP PRIME
     Dates: start: 20050316, end: 20050316
  24. TRASYLOL [Suspect]
     Indication: MITRAL VALVE REPLACEMENT
     Dosage: 200 ML, LOADING DOSE
     Route: 042
     Dates: start: 20050316, end: 20050316
  25. ACETYLSALICYLIC ACID SRT [Concomitant]
     Dosage: 325 MG, QD
     Route: 048
  26. HEPARIN [Concomitant]
     Dosage: 220 MG, UNK
     Route: 042
     Dates: start: 20050316, end: 20050316

REACTIONS (13)
  - MULTI-ORGAN FAILURE [None]
  - PAIN [None]
  - RENAL IMPAIRMENT [None]
  - FEAR [None]
  - ANHEDONIA [None]
  - STRESS [None]
  - DEATH [None]
  - RENAL INJURY [None]
  - INJURY [None]
  - RENAL FAILURE [None]
  - EMOTIONAL DISTRESS [None]
  - ANXIETY [None]
  - UNEVALUABLE EVENT [None]
